FAERS Safety Report 6386224-5 (Version None)
Quarter: 2009Q3

REPORT INFORMATION
  Report Type: 
  Country: None (occurrence: None)
  Receive Date: 20090929
  Receipt Date: 20090605
  Transmission Date: 20100115
  Serious: No
  Sender: FDA-Public Use
  Company Number: 249086

PATIENT
  Age: 83 Year
  Sex: Female

DRUGS (2)
  1. LUCENTIS [Suspect]
     Indication: MACULAR DEGENERATION
     Dosage: Q2W, INTRAVITREAL
     Route: 045
     Dates: start: 20070910
  2. XALATAN EYE GTTS. (LATANOPROST) [Concomitant]

REACTIONS (1)
  - OCULAR HYPERAEMIA [None]
